FAERS Safety Report 5134206-3 (Version None)
Quarter: 2006Q4

REPORT INFORMATION
  Report Type: 
  Country: None (occurrence: None)
  Receive Date: 20061019
  Receipt Date: 20061011
  Transmission Date: 20070319
  Serious: Yes (Other)
  Sender: FDA-Public Use
  Company Number: 2006-05363

PATIENT
  Age: 39 Year
  Sex: Female

DRUGS (1)
  1. FERRLECIT [Suspect]
     Indication: IRON DEFICIENCY
     Dosage: 62.5 MG IN 100 ML SALINE, SINGLE, INTRAVENOUS
     Route: 042
     Dates: start: 20060906, end: 20060906

REACTIONS (3)
  - HYPOTENSION [None]
  - PALLOR [None]
  - TONIC CLONIC MOVEMENTS [None]
